FAERS Safety Report 8480820 (Version 2)
Quarter: 2012Q4

REPORT INFORMATION
  Report Type: 
  Country: US (occurrence: US)
  Receive Date: 20120328
  Receipt Date: 20120830
  Transmission Date: 20130627
  Serious: No
  Sender: FDA-Public Use
  Company Number: US-BAYER-2012-030135

PATIENT
  Age: 78 Year
  Sex: Female

DRUGS (12)
  1. GADAVIST [Suspect]
     Indication: NUCLEAR MAGNETIC RESONANCE IMAGING
     Dosage: 6 ml, UNK
     Dates: start: 20120323, end: 20120323
  2. ZOCOR [Concomitant]
     Dosage: 40 mg, UNK
  3. NORVASC [Concomitant]
     Dosage: 5 mg, UNK
  4. LISINOPRIL [Concomitant]
     Dosage: 20 mg, UNK
  5. SYMBICORT [Concomitant]
  6. CALCIUM [CALCIUM] [Concomitant]
  7. METAMUCIL [Concomitant]
  8. LATANOPROST [Concomitant]
     Dosage: .005 %, UNK
  9. NITROSTAT [Concomitant]
     Dosage: 0.4 mg, UNK
     Route: 060
  10. TYLENOL EXTRA STRENGTH [Concomitant]
  11. PERCOCET [Concomitant]
     Dosage: 640 mg, UNK
  12. CLONIDINE [Concomitant]
     Dosage: .1 mg, UNK

REACTIONS (5)
  - Sneezing [None]
  - Urticaria [Recovered/Resolved]
  - Oedema mouth [Recovered/Resolved]
  - Dyspnoea [None]
  - Ocular hyperaemia [Recovered/Resolved]
